FAERS Safety Report 9232311 (Version 2)
Quarter: 2016Q3

REPORT INFORMATION
  Report Type: Spontaneous
  Country: US (occurrence: US)
  Receive Date: 20130416
  Receipt Date: 20160715
  Transmission Date: 20161109
  Serious: Yes (Hospitalization)
  Sender: FDA-Public Use
  Company Number: US-RANBAXY-2013US-67295

PATIENT
  Age: 13 Year
  Sex: Female
  Weight: 61 kg

DRUGS (4)
  1. BUTALBITAL [Interacting]
     Active Substance: BUTALBITAL
     Indication: PRODUCT USED FOR UNKNOWN INDICATION
     Dosage: UNK
     Route: 048
  2. AMLODIPINE [Suspect]
     Active Substance: AMLODIPINE BESYLATE
     Indication: PRODUCT USED FOR UNKNOWN INDICATION
     Dosage: UNK
     Route: 048
  3. CAFFEINE. [Suspect]
     Active Substance: CAFFEINE
     Indication: PRODUCT USED FOR UNKNOWN INDICATION
     Dosage: UNK
     Route: 065
  4. ALCOHOL. [Interacting]
     Active Substance: ALCOHOL
     Indication: PRODUCT USED FOR UNKNOWN INDICATION
     Dosage: 6 BOTTLES OF BEER
     Route: 048

REACTIONS (13)
  - Heart rate increased [Recovering/Resolving]
  - Hypoperfusion [Recovering/Resolving]
  - Intentional overdose [Recovering/Resolving]
  - Drug interaction [Unknown]
  - Metabolic acidosis [Recovering/Resolving]
  - Toxicity to various agents [Recovering/Resolving]
  - Lactic acidosis [Recovering/Resolving]
  - Organ failure [None]
  - Blood creatinine increased [Recovered/Resolved]
  - Mental impairment [Recovering/Resolving]
  - Somnolence [None]
  - Oliguria [Recovering/Resolving]
  - Hypotension [Recovering/Resolving]
